FAERS Safety Report 13693805 (Version 1)
Quarter: 2017Q2

REPORT INFORMATION
  Report Type: Spontaneous
  Country: US (occurrence: US)
  Receive Date: 20170627
  Receipt Date: 20170627
  Transmission Date: 20170830
  Serious: Yes (Other)
  Sender: FDA-Public Use
  Company Number: US-JAZZ-2017-US-007447

PATIENT
  Age: 29 Year
  Sex: Female

DRUGS (1)
  1. XYREM [Suspect]
     Active Substance: SODIUM OXYBATE
     Indication: NARCOLEPSY
     Dosage: 6 ML TWICE NIGHTLY
     Route: 048

REACTIONS (8)
  - Somnolence [Recovered/Resolved]
  - Bradycardia [Unknown]
  - Confusional state [Recovered/Resolved]
  - Sedation [Recovered/Resolved]
  - Lethargy [Recovered/Resolved]
  - Unresponsive to stimuli [Recovered/Resolved]
  - Suicide attempt [Unknown]
  - Euphoric mood [Unknown]

NARRATIVE: CASE EVENT DATE: 20170507
